FAERS Safety Report 5025693-X (Version None)
Quarter: 2006Q2

REPORT INFORMATION
  Report Type: 
  Country: None (occurrence: None)
  Receive Date: 20060427
  Receipt Date: 20050519
  Transmission Date: 20061013
  Serious: Yes (Other)
  Sender: FDA-Public Use
  Company Number: 2005076818

PATIENT
  Age: 57 Year
  Sex: Female
  Weight: 62.1428 kg

DRUGS (1)
  1. AZITHROMYCIN [Suspect]
     Indication: PHARYNGOLARYNGEAL PAIN
     Dosage: 250 MG (250 MG, DAILY INTERVAL: EVERY DAY), ORAL
     Route: 048
     Dates: start: 20050512

REACTIONS (1)
  - BLOOD POTASSIUM INCREASED [None]
